FAERS Safety Report 14750711 (Version 1)
Quarter: 2018Q2

REPORT INFORMATION
  Report Type: Spontaneous
  Country: US (occurrence: US)
  Receive Date: 20180406
  Receipt Date: 20180406
  Transmission Date: 20180711
  Serious: Yes (Hospitalization, Other)
  Sender: FDA-Public Use
  Company Number: None

PATIENT
  Age: 5 Year
  Sex: Male
  Weight: 17.1 kg

DRUGS (2)
  1. CLAIRTON [Concomitant]
  2. CIPROFLOXACIN. [Suspect]
     Active Substance: CIPROFLOXACIN
     Indication: EYE INFECTION
     Dosage: ?          QUANTITY:1 DROP(S);?
     Route: 047
     Dates: start: 20180403, end: 20180404

REACTIONS (4)
  - Lethargy [None]
  - Fatigue [None]
  - Wheezing [None]
  - Seizure [None]

NARRATIVE: CASE EVENT DATE: 20180404
